FAERS Safety Report 7608160-6 (Version None)
Quarter: 2011Q3

REPORT INFORMATION
  Report Type: 
  Country: None (occurrence: None)
  Receive Date: 20110714
  Receipt Date: 20110621
  Transmission Date: 20111222
  Serious: No
  Sender: FDA-Public Use
  Company Number: US-B.I. PHARMACEUTICALS,INC./RIDGEFIELD-2011-BP-13817BP

PATIENT
  Age: 70 Year
  Sex: Female

DRUGS (5)
  1. INSULIN [Concomitant]
  2. LASIX [Concomitant]
  3. DIOVAN [Concomitant]
  4. WARFARIN SODIUM [Concomitant]
  5. SPIRIVA [Suspect]
     Indication: CHRONIC OBSTRUCTIVE PULMONARY DISEASE
     Dosage: 18 MCG
     Route: 055
     Dates: start: 20110519

REACTIONS (4)
  - OROPHARYNGEAL PAIN [None]
  - OEDEMA PERIPHERAL [None]
  - JOINT SWELLING [None]
  - BLOOD GLUCOSE INCREASED [None]
